FAERS Safety Report 12413127 (Version 8)
Quarter: 2017Q1

REPORT INFORMATION
  Report Type: Report from Study
  Country: US (occurrence: US)
  Receive Date: 20160527
  Receipt Date: 20170308
  Transmission Date: 20170428
  Serious: Yes (Hospitalization, Other)
  Sender: FDA-Public Use
  Company Number: US-BAYER-2016-056892

PATIENT
  Age: 75 Year
  Sex: Female
  Weight: 71.66 kg

DRUGS (13)
  1. ORENITRAM [Concomitant]
     Active Substance: TREPROSTINIL
     Dosage: UNK
  2. ORENITRAM [Concomitant]
     Active Substance: TREPROSTINIL
     Dosage: 1 MG, TID
  3. LETAIRIS [Concomitant]
     Active Substance: AMBRISENTAN
     Dosage: UNK
  4. ADEMPAS [Suspect]
     Active Substance: RIOCIGUAT
     Indication: PULMONARY ARTERIAL HYPERTENSION
     Dosage: 2.5 MG, TID
     Route: 048
  5. METFORMIN [Concomitant]
     Active Substance: METFORMIN HYDROCHLORIDE
     Dosage: UNK
  6. ADEMPAS [Suspect]
     Active Substance: RIOCIGUAT
     Indication: PULMONARY ARTERIAL HYPERTENSION
     Dosage: UNK
     Route: 048
     Dates: start: 20160321
  7. ADEMPAS [Suspect]
     Active Substance: RIOCIGUAT
     Indication: PULMONARY ARTERIAL HYPERTENSION
     Dosage: 2.5 MG, TID
     Route: 048
  8. ADEMPAS [Suspect]
     Active Substance: RIOCIGUAT
     Indication: PULMONARY ARTERIAL HYPERTENSION
     Dosage: 2.5 MG, TID
     Route: 048
  9. ADEMPAS [Suspect]
     Active Substance: RIOCIGUAT
     Indication: PULMONARY ARTERIAL HYPERTENSION
     Dosage: 2.5 MG, TID
     Route: 048
  10. ADEMPAS [Suspect]
     Active Substance: RIOCIGUAT
     Indication: PULMONARY ARTERIAL HYPERTENSION
     Dosage: 2.5 MG, TID
     Route: 048
  11. ORENITRAM [Concomitant]
     Active Substance: TREPROSTINIL
     Dosage: 1.25 MG, TID
  12. ADEMPAS [Suspect]
     Active Substance: RIOCIGUAT
     Indication: PULMONARY ARTERIAL HYPERTENSION
     Dosage: 2.5 MG, TID
     Route: 048
  13. ORENITRAM [Concomitant]
     Active Substance: TREPROSTINIL
     Dosage: 0.5 MG, TID

REACTIONS (24)
  - Cough [None]
  - Dizziness [Unknown]
  - Lung disorder [None]
  - Headache [Unknown]
  - Groin pain [None]
  - Dyspepsia [None]
  - Oedema peripheral [Unknown]
  - Heart rate abnormal [Unknown]
  - Bone pain [Unknown]
  - Blood glucose decreased [Unknown]
  - Hypotension [Unknown]
  - Localised oedema [Unknown]
  - Diabetes mellitus [Unknown]
  - Pain in extremity [Unknown]
  - Vaginal discharge [Unknown]
  - Nasopharyngitis [None]
  - Pain in extremity [None]
  - Peripheral swelling [Unknown]
  - Loss of consciousness [Unknown]
  - Gallbladder disorder [Unknown]
  - Oxygen saturation decreased [Unknown]
  - Dyspnoea [None]
  - Dyspnoea exertional [Unknown]
  - Blood potassium decreased [None]
